FAERS Safety Report 13035090 (Version 1)
Quarter: 2016Q4

REPORT INFORMATION
  Report Type: Spontaneous
  Country: US (occurrence: US)
  Receive Date: 20161216
  Receipt Date: 20161216
  Transmission Date: 20170207
  Serious: Yes (Other)
  Sender: FDA-Public Use
  Company Number: US-009507513-1612USA008025

PATIENT
  Age: 3 Year
  Sex: Female

DRUGS (1)
  1. SINGULAIR [Suspect]
     Active Substance: MONTELUKAST SODIUM
     Indication: ASTHMA
     Dosage: UNK
     Route: 048
     Dates: start: 2014

REACTIONS (12)
  - Obsessive-compulsive disorder [Recovering/Resolving]
  - Crying [Recovering/Resolving]
  - Thinking abnormal [Recovering/Resolving]
  - Tremor [Recovering/Resolving]
  - Memory impairment [Recovering/Resolving]
  - Confusional state [Recovering/Resolving]
  - Gastric disorder [Recovering/Resolving]
  - Anxiety [Recovering/Resolving]
  - Epistaxis [Not Recovered/Not Resolved]
  - Depression [Recovering/Resolving]
  - Sleep disorder [Recovering/Resolving]
  - Mental impairment [Recovering/Resolving]
